FAERS Safety Report 14519437 (Version 1)
Quarter: 2018Q1

REPORT INFORMATION
  Report Type: Spontaneous
  Country: DE (occurrence: DE)
  Receive Date: 20180212
  Receipt Date: 20180212
  Transmission Date: 20180509
  Serious: Yes (Life-Threatening, Hospitalization, Other)
  Sender: FDA-Public Use
  Company Number: DE-TEVA-2018-DE-855422

PATIENT
  Age: 70 Year
  Sex: Male

DRUGS (5)
  1. ARTERENOL [Concomitant]
     Active Substance: NOREPINEPHRINE HYDROCHLORIDE, (+/-)-
  2. SALBUTAMOL [Concomitant]
     Active Substance: ALBUTEROL
  3. PROPOFOL. [Suspect]
     Active Substance: PROPOFOL
     Dosage: 20 MG/ML
     Route: 065
  4. LASIX [Concomitant]
     Active Substance: FUROSEMIDE
     Dosage: 20 MG
  5. AMPHO MORONAL [Concomitant]
     Active Substance: AMPHOTERICIN B

REACTIONS (1)
  - Torsade de pointes [Unknown]
